FAERS Safety Report 9284694 (Version 1)
Quarter: 2013Q2

REPORT INFORMATION
  Report Type: Spontaneous
  Country: MY (occurrence: MY)
  Receive Date: 20130513
  Receipt Date: 20130513
  Transmission Date: 20140414
  Serious: Yes (Other)
  Sender: FDA-Public Use
  Company Number: MY-RANBAXY-2013R3-68631

PATIENT
  Age: 25 Year
  Sex: Female

DRUGS (1)
  1. HISTACOL [Suspect]
     Indication: PROPHYLAXIS
     Dosage: 300 MG DAILY
     Route: 048

REACTIONS (2)
  - Urticaria [Unknown]
  - Lip swelling [Unknown]
